FAERS Safety Report 13255714 (Version 1)
Quarter: 2017Q1

REPORT INFORMATION
  Report Type: Spontaneous
  Country: KR (occurrence: KR)
  Receive Date: 20170221
  Receipt Date: 20170221
  Transmission Date: 20170428
  Serious: Yes (Other)
  Sender: FDA-Public Use
  Company Number: KR-JNJFOC-20170215739

PATIENT

DRUGS (1)
  1. DOXORUBICIN HYDROCHLORIDE. [Suspect]
     Active Substance: DOXORUBICIN HYDROCHLORIDE
     Indication: HEPATOCELLULAR CARCINOMA
     Dosage: 35 MG/ML FOR DEB-TACE AND 70 MG (MAX) FOR TACE.
     Route: 065

REACTIONS (4)
  - Off label use [Unknown]
  - Incorrect route of drug administration [Unknown]
  - Product use issue [Unknown]
  - Arterial injury [Unknown]
